FAERS Safety Report 16238176 (Version 1)
Quarter: 2019Q2

REPORT INFORMATION
  Report Type: Spontaneous
  Country: US (occurrence: US)
  Receive Date: 20190425
  Receipt Date: 20190425
  Transmission Date: 20190711
  Serious: No
  Sender: FDA-Public Use
  Company Number: US-PFIZER INC-2018414327

PATIENT
  Age: 76 Year
  Sex: Female

DRUGS (5)
  1. IBRANCE [Suspect]
     Active Substance: PALBOCICLIB
     Dosage: 100 MG, UNK
     Dates: start: 20171114
  2. LETROZOLE. [Suspect]
     Active Substance: LETROZOLE
     Indication: METASTATIC NEOPLASM
     Dosage: 2.5 DAILY (EVERY DAY)
     Dates: start: 20170912
  3. IBRANCE [Suspect]
     Active Substance: PALBOCICLIB
     Dosage: 75 MG, CYCLIC (FOR 3 WEEKS WITH 1 WEEK OFF)
     Dates: start: 20180613
  4. XGEVA [Suspect]
     Active Substance: DENOSUMAB
     Dosage: UNK [SHOT, EVERY 4 WEEKS]
  5. IBRANCE [Suspect]
     Active Substance: PALBOCICLIB
     Indication: METASTATIC NEOPLASM
     Dosage: 125 MG, UNK
     Dates: start: 20170916, end: 2017

REACTIONS (1)
  - Full blood count decreased [Recovered/Resolved]
